FAERS Safety Report 4809194-7 (Version None)
Quarter: 2005Q4

REPORT INFORMATION
  Report Type: 
  Country: None (occurrence: None)
  Receive Date: 20051021
  Receipt Date: 20051012
  Transmission Date: 20060501
  Serious: Yes (Life-Threatening)
  Sender: FDA-Public Use
  Company Number: 210131

PATIENT
  Age: 10 Year
  Sex: Female

DRUGS (5)
  1. RITUXAN [Suspect]
     Indication: PROPHYLAXIS AGAINST TRANSPLANT REJECTION
     Dosage: 380 MG, INTRAVENOUS
     Route: 042
     Dates: start: 20040127, end: 20040127
  2. MYCOPHENOLATE MOFETIL (MYCOPHENOLATE MOFETIL) [Suspect]
     Indication: IMMUNOSUPPRESSION
     Dosage: ORAL
     Route: 048
     Dates: start: 20040129, end: 20040514
  3. TACROLIMUS (TACROLIMUS) [Concomitant]
  4. METHYLPREDNISOLONE [Concomitant]
  5. BASILIXIMAB (BASILIXIMAB) [Concomitant]

REACTIONS (4)
  - CYTOMEGALOVIRUS INFECTION [None]
  - PATHOGEN RESISTANCE [None]
  - PNEUMOCYSTIS JIROVECI PNEUMONIA [None]
  - TRANSPLANT REJECTION [None]
